FAERS Safety Report 19115661 (Version 3)
Quarter: 2021Q2

REPORT INFORMATION
  Report Type: Spontaneous
  Country: FR (occurrence: FR)
  Receive Date: 20210409
  Receipt Date: 20210520
  Transmission Date: 20210717
  Serious: Yes (Other)
  Sender: FDA-Public Use
  Company Number: FR-REGENERON PHARMACEUTICALS, INC.-2021-40915

PATIENT

DRUGS (2)
  1. EYLEA [Suspect]
     Active Substance: AFLIBERCEPT
     Dosage: 11TH INJECTION OF EYLEA IN HER RIGHT EYE
  2. EYLEA [Suspect]
     Active Substance: AFLIBERCEPT
     Indication: MYOPIC TRACTION MACULOPATHY
     Dosage: UNK

REACTIONS (3)
  - Product use in unapproved indication [Unknown]
  - Amaurosis fugax [Recovered/Resolved]
  - Off label use [Unknown]
